FAERS Safety Report 20778086 (Version 1)
Quarter: 2022Q2

REPORT INFORMATION
  Report Type: Spontaneous
  Country: US (occurrence: None)
  Receive Date: 20220503
  Receipt Date: 20220503
  Transmission Date: 20220721
  Serious: Yes (Hospitalization, Disabling)
  Sender: FDA-Public Use
  Company Number: None

PATIENT
  Age: 50 Year
  Sex: Female

DRUGS (1)
  1. HERBALS\MITRAGYNINE [Suspect]
     Active Substance: HERBALS\MITRAGYNINE
     Dates: start: 20200101, end: 20220427

REACTIONS (8)
  - Drug dependence [None]
  - Sleep apnoea syndrome [None]
  - Sleep disorder [None]
  - Vomiting [None]
  - Withdrawal syndrome [None]
  - Agitation [None]
  - Rhinorrhoea [None]
  - Influenza like illness [None]

NARRATIVE: CASE EVENT DATE: 20220428
